FAERS Safety Report 8432774-7 (Version None)
Quarter: 2012Q2

REPORT INFORMATION
  Report Type: 
  Country: None (occurrence: None)
  Receive Date: 20120613
  Receipt Date: 20120604
  Transmission Date: 20120825
  Serious: No
  Sender: FDA-Public Use
  Company Number: US-PFIZER INC-2012135846

PATIENT
  Sex: Female

DRUGS (3)
  1. PROZAC [Concomitant]
     Dosage: UNK
  2. LO/OVRAL-28 [Suspect]
     Indication: CONTRACEPTION
     Dosage: UNK
  3. TRAZODONE [Concomitant]
     Dosage: UNK

REACTIONS (2)
  - DRUG INEFFECTIVE [None]
  - UNINTENDED PREGNANCY [None]
